FAERS Safety Report 10648600 (Version 1)
Quarter: 2014Q4

REPORT INFORMATION
  Report Type: Spontaneous
  Country: BR (occurrence: BR)
  Receive Date: 20141212
  Receipt Date: 20141212
  Transmission Date: 20150529
  Serious: Yes (Other)
  Sender: FDA-Public Use
  Company Number: BR-BEH-2014047066

PATIENT
  Age: 16 Year
  Sex: Male
  Weight: 54.9 kg

DRUGS (11)
  1. CALCIUM CARBONATE. [Concomitant]
     Active Substance: CALCIUM CARBONATE
     Route: 048
  2. D3 VITAMIN [Concomitant]
     Dosage: 5 DROPS PER DAY
     Route: 048
  3. SANDOGLOBULIN [Suspect]
     Active Substance: HUMAN IMMUNOGLOBULIN G
     Indication: ARTHRITIS
     Dosage: CALCULATED DOSAGE OF 48 G
     Route: 042
     Dates: start: 20141007, end: 20141007
  4. AZATHIOPRINE. [Concomitant]
     Active Substance: AZATHIOPRINE
     Route: 048
  5. ALL OTHER THERAPEUTIC PRODUCTS [Concomitant]
     Active Substance: UNSPECIFIED INGREDIENT
     Route: 061
  6. OMEPRAZOLE. [Concomitant]
     Active Substance: OMEPRAZOLE
     Route: 048
  7. SANDOGLOBULIN [Suspect]
     Active Substance: HUMAN IMMUNOGLOBULIN G
     Indication: ARTHRITIS
     Dosage: CALCULATED DOSAGE OF 48 G
     Route: 042
     Dates: start: 20141007, end: 20141007
  8. CICLOSPORIN [Concomitant]
     Active Substance: CYCLOSPORINE
     Route: 048
  9. CEFALEXIN [Concomitant]
     Active Substance: CEPHALEXIN
     Route: 048
  10. HYDROXICHLOROQUINE [Concomitant]
     Route: 048
  11. RITUXIMAB [Concomitant]
     Active Substance: RITUXIMAB

REACTIONS (4)
  - Malaise [Recovered/Resolved]
  - Chills [Recovered/Resolved]
  - Hypothermia [Recovered/Resolved]
  - Tremor [Recovered/Resolved]

NARRATIVE: CASE EVENT DATE: 20141007
